FAERS Safety Report 4574979-1 (Version None)
Quarter: 2005Q1

REPORT INFORMATION
  Report Type: 
  Country: None (occurrence: None)
  Receive Date: 20050208
  Receipt Date: 20041021
  Transmission Date: 20050727
  Serious: Yes (Hospitalization, Other)
  Sender: FDA-Public Use
  Company Number: IE-MERCK-0410GBR00261

PATIENT
  Age: 75 Year
  Sex: Male

DRUGS (6)
  1. VIOXX [Suspect]
     Indication: ARTHRALGIA
     Route: 048
     Dates: start: 20000401, end: 20041001
  2. ATORVASTATIN CALCIUM [Concomitant]
     Indication: CEREBROVASCULAR ACCIDENT
     Route: 065
     Dates: start: 19950101
  3. ASPIRIN [Concomitant]
     Indication: CEREBROVASCULAR ACCIDENT
     Route: 065
     Dates: start: 19950101
  4. PERINDOPRIL ERBUMINE [Concomitant]
     Indication: HYPERTENSION
     Route: 065
     Dates: start: 20020101
  5. METOPROLOL TARTRATE [Concomitant]
     Indication: HYPERTENSION
     Route: 065
     Dates: start: 20020101
  6. BENDROFLUMETHIAZIDE AND POTASSIUM CHLORIDE [Concomitant]
     Indication: HYPERTENSION
     Route: 065
     Dates: start: 20020101

REACTIONS (1)
  - MYOCARDIAL INFARCTION [None]
